FAERS Safety Report 8274228-7 (Version None)
Quarter: 2012Q2

REPORT INFORMATION
  Report Type: 
  Country: None (occurrence: None)
  Receive Date: 20120411
  Receipt Date: 20120406
  Transmission Date: 20120825
  Serious: Yes (Other)
  Sender: FDA-Public Use
  Company Number: US-UCBSA-054890

PATIENT
  Age: 60 Year
  Sex: Male

DRUGS (1)
  1. KEPPRA XR [Suspect]
     Dosage: STRENGTH:500MG

REACTIONS (1)
  - BRAIN CANCER METASTATIC [None]
